FAERS Safety Report 9683478 (Version 3)
Quarter: 2014Q1

REPORT INFORMATION
  Report Type: Spontaneous
  Country: AR (occurrence: AR)
  Receive Date: 20131112
  Receipt Date: 20140117
  Transmission Date: 20141002
  Serious: Yes (Death, Other)
  Sender: FDA-Public Use
  Company Number: AR-INCYTE CORPORATION-2013IN002593

PATIENT
  Sex: Female

DRUGS (5)
  1. JAKAVI [Suspect]
     Indication: MYELOFIBROSIS
     Dosage: 10 MG, Q12H
     Route: 048
     Dates: start: 20131014, end: 20131021
  2. JAKAVI [Suspect]
     Dosage: 5 MG,  Q12H
     Route: 048
  3. ACETYLSALICYLIC ACID [Suspect]
     Indication: EMBOLISM
     Dosage: 100 MG, UNK
     Route: 048
     Dates: start: 20131001, end: 20131021
  4. ENOXAPARIN [Suspect]
     Indication: EMBOLISM
     Dosage: 60 MG, EVERY 12 HOURS
     Route: 058
     Dates: start: 20131001, end: 20131021
  5. DIURETICS [Concomitant]

REACTIONS (8)
  - Retroperitoneal haematoma [Fatal]
  - Pericardial haemorrhage [Fatal]
  - Shock [Fatal]
  - Cardiac failure [Unknown]
  - Platelet count increased [Unknown]
  - Pain [Unknown]
  - Abdominal distension [Unknown]
  - Blood creatinine decreased [None]
